FAERS Safety Report 5028055-4 (Version None)
Quarter: 2006Q2

REPORT INFORMATION
  Report Type: 
  Country: None (occurrence: None)
  Receive Date: 20060612
  Receipt Date: 20060524
  Transmission Date: 20061013
  Serious: Yes (Death, Hospitalization)
  Sender: FDA-Public Use
  Company Number: 23100288

PATIENT
  Age: 92 Year
  Sex: Male

DRUGS (5)
  1. NOVASTAN [Suspect]
     Indication: CEREBRAL INFARCTION
     Dosage: 60 MG BID IV
     Route: 042
     Dates: start: 20060508, end: 20060509
  2. NORMAL SALINE [Concomitant]
  3. GLYCEOL [Concomitant]
  4. LOW MOLECULAR DEXTRAN [Concomitant]
  5. RADICUT (EDARAVONE) [Concomitant]

REACTIONS (2)
  - DEPRESSED LEVEL OF CONSCIOUSNESS [None]
  - HAEMORRHAGIC CEREBRAL INFARCTION [None]
